FAERS Safety Report 15107310 (Version 1)
Quarter: 2018Q3

REPORT INFORMATION
  Report Type: Spontaneous
  Country: IT (occurrence: IT)
  Receive Date: 20180704
  Receipt Date: 20180704
  Transmission Date: 20181010
  Serious: Yes (Other)
  Sender: FDA-Public Use
  Company Number: IT-TEVA-2018-IT-916588

PATIENT
  Age: 42 Year
  Sex: Female

DRUGS (2)
  1. METHOTREXATE. [Suspect]
     Active Substance: METHOTREXATE
     Indication: PSORIATIC ARTHROPATHY
     Route: 030
     Dates: start: 20140301, end: 20170105
  2. MEDROL [Concomitant]
     Active Substance: METHYLPREDNISOLONE
     Route: 065

REACTIONS (1)
  - Drug ineffective [Not Recovered/Not Resolved]

NARRATIVE: CASE EVENT DATE: 20170101
